FAERS Safety Report 5831716-8 (Version None)
Quarter: 2008Q3

REPORT INFORMATION
  Report Type: 
  Country: None (occurrence: None)
  Receive Date: 20080803
  Receipt Date: 20080723
  Transmission Date: 20090109
  Serious: Yes (Other)
  Sender: FDA-Public Use
  Company Number: PHHY2008IE15333

PATIENT
  Age: 59 Year
  Sex: Male

DRUGS (1)
  1. LESCOL XL [Suspect]
     Dosage: UNK
     Dates: start: 20030101

REACTIONS (7)
  - ANTINUCLEAR ANTIBODY INCREASED [None]
  - ARTHROPATHY [None]
  - CARPAL TUNNEL SYNDROME [None]
  - HYPOAESTHESIA [None]
  - LIMB OPERATION [None]
  - OEDEMA PERIPHERAL [None]
  - RAYNAUD'S PHENOMENON [None]
